FAERS Safety Report 13081252 (Version 2)
Quarter: 2017Q1

REPORT INFORMATION
  Report Type: Report from Study
  Country: US (occurrence: US)
  Receive Date: 20170103
  Receipt Date: 20170202
  Transmission Date: 20170428
  Serious: Yes (Hospitalization, Other)
  Sender: FDA-Public Use
  Company Number: US-BRISTOL-MYERS SQUIBB COMPANY-BMS-2016-040557

PATIENT
  Age: 63 Year
  Sex: Female
  Weight: 96 kg

DRUGS (1)
  1. IPILIMUMAB [Suspect]
     Active Substance: IPILIMUMAB
     Indication: MALIGNANT MELANOMA
     Dosage: 960 MG, ONLY ONE DOSE
     Route: 042
     Dates: start: 20160421

REACTIONS (30)
  - Mucous stools [Unknown]
  - Aspartate aminotransferase abnormal [Unknown]
  - Chromaturia [Unknown]
  - Colitis [Unknown]
  - Hypothalamo-pituitary disorder [Unknown]
  - Syncope [Unknown]
  - C-reactive protein increased [Unknown]
  - Asthenia [Unknown]
  - Haemoglobin decreased [Unknown]
  - Dysgeusia [Recovered/Resolved]
  - Visual impairment [Unknown]
  - Alanine aminotransferase abnormal [Unknown]
  - Vision blurred [Unknown]
  - Anal incontinence [Unknown]
  - Gastrooesophageal reflux disease [Unknown]
  - Dyskinesia [Unknown]
  - Rash [Recovering/Resolving]
  - Movement disorder [Unknown]
  - Diarrhoea haemorrhagic [Unknown]
  - Blood lactate dehydrogenase increased [Unknown]
  - Thyroid disorder [Unknown]
  - Sluggishness [Unknown]
  - Dysstasia [Unknown]
  - Blood thyroid stimulating hormone increased [Unknown]
  - Pain in extremity [Unknown]
  - Blood glucose abnormal [Unknown]
  - Blindness [Unknown]
  - Paralysis [Unknown]
  - Macule [Recovering/Resolving]
  - Insomnia [Unknown]

NARRATIVE: CASE EVENT DATE: 201611
